FAERS Safety Report 12166798 (Version 1)
Quarter: 2016Q1

REPORT INFORMATION
  Report Type: Spontaneous
  Country: US (occurrence: US)
  Receive Date: 20160310
  Receipt Date: 20160310
  Transmission Date: 20160526
  Serious: Yes (Other)
  Sender: FDA-Public Use
  Company Number: US-BEH-2016059479

PATIENT
  Sex: Female
  Weight: 112 kg

DRUGS (31)
  1. MESTINON [Concomitant]
     Active Substance: PYRIDOSTIGMINE BROMIDE
  2. DIPHENHYDRAMINE. [Concomitant]
     Active Substance: DIPHENHYDRAMINE
  3. HEPARIN [Concomitant]
     Active Substance: HEPARIN SODIUM
  4. LIDOCAINE/PRILOCAINE [Concomitant]
  5. VITAMIN C [Concomitant]
     Active Substance: ASCORBIC ACID
  6. PRIVIGEN [Suspect]
     Active Substance: HUMAN IMMUNOGLOBULIN G
     Indication: MYASTHENIA GRAVIS
     Dosage: 40 GM VIAL
  7. MICARDIS [Concomitant]
     Active Substance: TELMISARTAN
  8. PRADAXA [Concomitant]
     Active Substance: DABIGATRAN ETEXILATE MESYLATE
  9. CALCIUM+D [Concomitant]
  10. PRIVIGEN [Suspect]
     Active Substance: HUMAN IMMUNOGLOBULIN G
     Indication: HYPOGAMMAGLOBULINAEMIA
     Dosage: 5 GM VIAL
  11. ACETAMINOPHEN. [Concomitant]
     Active Substance: ACETAMINOPHEN
  12. TIKOSYN [Concomitant]
     Active Substance: DOFETILIDE
  13. NIACIN. [Concomitant]
     Active Substance: NIACIN
  14. METHOTREXATE [Concomitant]
     Active Substance: METHOTREXATE
  15. SODIUM CHLORIDE. [Concomitant]
     Active Substance: SODIUM CHLORIDE
  16. METROGEL [Concomitant]
     Active Substance: METRONIDAZOLE
  17. COENZYME Q10 [Concomitant]
     Active Substance: UBIDECARENONE
  18. NEXIUM [Concomitant]
     Active Substance: ESOMEPRAZOLE MAGNESIUM
  19. MELATONIN [Concomitant]
     Active Substance: MELATONIN
  20. NORVASC [Concomitant]
     Active Substance: AMLODIPINE BESYLATE
  21. COREG [Concomitant]
     Active Substance: CARVEDILOL
  22. LIPITOR [Concomitant]
     Active Substance: ATORVASTATIN CALCIUM
  23. ASPIRIN. [Concomitant]
     Active Substance: ASPIRIN
  24. POTASSIUM [Concomitant]
     Active Substance: POTASSIUM
  25. VITAMIN B12 [Concomitant]
     Active Substance: CYANOCOBALAMIN
  26. FINACEA [Concomitant]
     Active Substance: AZELAIC ACID
  27. PRIVIGEN [Suspect]
     Active Substance: HUMAN IMMUNOGLOBULIN G
     Route: 042
  28. EPIPEN [Concomitant]
     Active Substance: EPINEPHRINE
  29. GINKGO [Concomitant]
     Active Substance: GINKGO
  30. UROXATRAL [Concomitant]
     Active Substance: ALFUZOSIN HYDROCHLORIDE
  31. PREDNISONE. [Concomitant]
     Active Substance: PREDNISONE

REACTIONS (1)
  - Tooth abscess [Unknown]
